FAERS Safety Report 9625052 (Version 1)
Quarter: 2013Q4

REPORT INFORMATION
  Report Type: Spontaneous
  Country: GB (occurrence: None)
  Receive Date: 20131010
  Receipt Date: 20131010
  Transmission Date: 20140711
  Serious: No
  Sender: FDA-Public Use
  Company Number: 2013S1000086

PATIENT
  Age: 48 Year
  Sex: Male
  Weight: 97 kg

DRUGS (5)
  1. KRYSTEXXA [Suspect]
     Indication: GOUT
     Dosage: 8 MG, 1 IN 14 D, IV
     Route: 042
     Dates: start: 20130412, end: 20130412
  2. HYDROCORTISONE (HYDROCORTISONE) [Concomitant]
  3. METHYLPREDNISOLONE (METHYLPREDNISOLONE) [Concomitant]
  4. CHLORPHENAMINE MALEATE (CHLORPHENAMINE MALEATE) [Concomitant]
  5. CETIRIZINE (CETIRIZINE) [Concomitant]

REACTIONS (2)
  - Therapeutic response decreased [None]
  - Blood uric acid increased [None]
